FAERS Safety Report 7108084-7 (Version None)
Quarter: 2010Q4

REPORT INFORMATION
  Report Type: 
  Country: None (occurrence: None)
  Receive Date: 20101117
  Receipt Date: 20101111
  Transmission Date: 20110411
  Serious: Yes (Other)
  Sender: FDA-Public Use
  Company Number: CHPA2010US17370

PATIENT
  Age: 24 Year
  Sex: Female
  Weight: 58.957 kg

DRUGS (1)
  1. EXCEDRIN (MIGRAINE) [Suspect]
     Indication: MIGRAINE
     Dosage: 3 DF, BID
     Route: 048
     Dates: start: 20101108, end: 20101108

REACTIONS (4)
  - CHEST PAIN [None]
  - CHILLS [None]
  - OVERDOSE [None]
  - VOMITING [None]
